FAERS Safety Report 8876549 (Version 5)
Quarter: 2012Q4

REPORT INFORMATION
  Report Type: Report from Study
  Country: RO (occurrence: RO)
  Receive Date: 20121030
  Receipt Date: 20121213
  Transmission Date: 20130627
  Serious: Yes (Other)
  Sender: FDA-Public Use
  Company Number: RO-ROCHE-1148988

PATIENT
  Age: 54 Year
  Sex: Male
  Weight: 78 kg

DRUGS (5)
  1. RITUXIMAB [Suspect]
     Indication: B-CELL LYMPHOMA
     Dosage: Date of last dose prior to other episode of SAE: 27/Sep/2012
     Route: 042
     Dates: start: 20120927
  2. RITUXIMAB [Suspect]
     Dosage: Date of last dose prior to second episode of SAE: 08/nov/2012
     Route: 058
     Dates: start: 20121018
  3. PARACETAMOL [Concomitant]
     Indication: HEADACHE
     Route: 065
     Dates: start: 20121004, end: 20121007
  4. PARACETAMOL [Concomitant]
     Indication: UPPER RESPIRATORY TRACT INFECTION
     Route: 065
     Dates: start: 20121125, end: 20121126
  5. VITAMIN C [Concomitant]
     Indication: UPPER RESPIRATORY TRACT INFECTION
     Route: 065
     Dates: start: 20121125, end: 20121127

REACTIONS (1)
  - Injection site induration [Recovered/Resolved]
